FAERS Safety Report 8719738 (Version 4)
Quarter: 2012Q4

REPORT INFORMATION
  Report Type: 
  Country: CA (occurrence: CA)
  Receive Date: 20120813
  Receipt Date: 20121130
  Transmission Date: 20130627
  Serious: Yes (Hospitalization, Other)
  Sender: FDA-Public Use
  Company Number: PHHY2012CA069340

PATIENT
  Sex: Female

DRUGS (2)
  1. SANDOSTATIN LAR [Suspect]
     Indication: ANAEMIA
     Dosage: 20 mg, once a month
     Route: 030
     Dates: start: 20120611
  2. EPREX [Concomitant]
     Dosage: 1 DF, every 4 weeks

REACTIONS (7)
  - Coronary artery occlusion [Unknown]
  - Pulmonary oedema [Unknown]
  - Diabetes mellitus inadequate control [Unknown]
  - Myocardial infarction [Unknown]
  - Pneumonia [Unknown]
  - Blood pressure increased [Unknown]
  - Blood potassium increased [Unknown]
